FAERS Safety Report 7647841-5 (Version None)
Quarter: 2011Q3

REPORT INFORMATION
  Report Type: 
  Country: None (occurrence: None)
  Receive Date: 20110801
  Receipt Date: 20110720
  Transmission Date: 20111222
  Serious: Yes (Other)
  Sender: FDA-Public Use
  Company Number: US-CELGENEUS-163-20785-11042770

PATIENT
  Sex: Male

DRUGS (10)
  1. METOPROLOL TARTRATE [Concomitant]
     Route: 065
  2. LIPITOR [Concomitant]
  3. VERAPAMIL HCL [Concomitant]
     Route: 065
  4. JANTOVEN [Concomitant]
     Route: 065
  5. WELCHOL [Concomitant]
     Route: 065
  6. DIGOXIN [Concomitant]
     Route: 065
  7. THALOMID [Suspect]
     Dosage: 50 MILLIGRAM
     Route: 048
     Dates: start: 20110407
  8. KLOR-CON M20 [Concomitant]
     Dosage: M20
     Route: 065
  9. THALOMID [Suspect]
     Dosage: 25 MILLIGRAM
     Route: 048
  10. METFORMIN HCL [Concomitant]
     Route: 065

REACTIONS (2)
  - MUSCULAR WEAKNESS [None]
  - FALL [None]
